FAERS Safety Report 6064232-1 (Version None)
Quarter: 2009Q1

REPORT INFORMATION
  Report Type: 
  Country: None (occurrence: None)
  Receive Date: 20090121
  Receipt Date: 20080707
  Transmission Date: 20090719
  Serious: Yes (Other)
  Sender: FDA-Public Use
  Company Number: US-WYE-H04862908

PATIENT
  Age: 52 Year
  Sex: Female

DRUGS (1)
  1. PREMPRO [Suspect]
     Indication: HORMONE REPLACEMENT THERAPY
     Dates: start: 19950601, end: 19960501

REACTIONS (1)
  - BREAST CANCER [None]
